FAERS Safety Report 4954981-8 (Version None)
Quarter: 2006Q1

REPORT INFORMATION
  Report Type: 
  Country: None (occurrence: None)
  Receive Date: 20060327
  Receipt Date: 20060315
  Transmission Date: 20060701
  Serious: Yes (Hospitalization)
  Sender: FDA-Public Use
  Company Number: JP-SANOFI-SYNTHELABO-A01200602228

PATIENT
  Age: 55 Year
  Sex: Male

DRUGS (3)
  1. OXALIPLATIN [Suspect]
     Indication: RECTAL CANCER
     Dosage: 100 MG
     Route: 042
     Dates: start: 20060301, end: 20060301
  2. CALCIUM LEVOFOLINATE [Suspect]
     Indication: RECTAL CANCER
     Dosage: 150 MG
     Route: 042
     Dates: start: 20060301, end: 20060301
  3. FLUOROURACIL [Suspect]
     Indication: RECTAL CANCER
     Dosage: 1000 MG
     Route: 042
     Dates: start: 20060301, end: 20060301

REACTIONS (1)
  - PULMONARY TUBERCULOSIS [None]
